FAERS Safety Report 8207724-9 (Version None)
Quarter: 2012Q1

REPORT INFORMATION
  Report Type: 
  Country: None (occurrence: None)
  Receive Date: 20120313
  Receipt Date: 20120313
  Transmission Date: 20120608
  Serious: Yes (Hospitalization)
  Sender: FDA-Public Use
  Company Number: None

PATIENT
  Sex: Male
  Weight: 66.36 kg

DRUGS (2)
  1. TAXOL [Suspect]
     Dosage: 176 MG
     Dates: end: 20120229
  2. CARBOPLATIN [Suspect]
     Dosage: 516 MG
     Dates: end: 20120229

REACTIONS (1)
  - DUODENAL ULCER PERFORATION [None]
